FAERS Safety Report 9711218 (Version 2)
Quarter: 2013Q4

REPORT INFORMATION
  Report Type: Spontaneous
  Country: US (occurrence: US)
  Receive Date: 20131126
  Receipt Date: 20131126
  Transmission Date: 20140711
  Serious: No
  Sender: FDA-Public Use
  Company Number: US-BRISTOL-MYERS SQUIBB COMPANY-18741561

PATIENT
  Age: 46 Year
  Sex: Female

DRUGS (2)
  1. BYDUREON [Suspect]
     Dosage: INJECTION?NO OF INJ:8
  2. METFORMIN HCL [Suspect]

REACTIONS (4)
  - Injection site extravasation [Unknown]
  - Injection site pain [Unknown]
  - Blood glucose increased [Unknown]
  - Decreased appetite [Unknown]
